FAERS Safety Report 8568068 (Version 4)
Quarter: 2012Q4

REPORT INFORMATION
  Report Type: 
  Country: GB (occurrence: GB)
  Receive Date: 20120518
  Receipt Date: 20121001
  Transmission Date: 20130627
  Serious: Yes (Hospitalization)
  Sender: FDA-Public Use
  Company Number: GB-RANBAXY-2012R1-56420

PATIENT
  Age: 73 Year
  Sex: Male

DRUGS (4)
  1. NAPROXEN [Suspect]
     Indication: ARTHRITIS
     Dosage: 500 mg, bid
     Route: 048
     Dates: start: 20120401, end: 20120422
  2. NAPROXEN [Suspect]
     Indication: PROCEDURAL PAIN
  3. CO-CODAMOL [Concomitant]
     Indication: PAIN
     Dosage: 2 DF, 4/ as necessary
     Route: 065
  4. HEPARIN LOW MOLECULAR WEIGHT [Concomitant]
     Indication: THROMBOSIS PROPHYLAXIS
     Dosage: For 14 days post discharge
     Route: 065

REACTIONS (9)
  - Abdominal pain [Unknown]
  - Dizziness [Unknown]
  - Small intestinal haemorrhage [Recovering/Resolving]
  - Duodenal ulcer [Unknown]
  - Dizziness [Unknown]
  - Lethargy [Unknown]
  - Pallor [Unknown]
  - Faeces discoloured [Unknown]
  - Small intestinal haemorrhage [Recovering/Resolving]
